FAERS Safety Report 5372050-2 (Version None)
Quarter: 2007Q2

REPORT INFORMATION
  Report Type: 
  Country: None (occurrence: None)
  Receive Date: 20070627
  Receipt Date: 20070627
  Transmission Date: 20071010
  Serious: Yes (Hospitalization)
  Sender: FDA-Public Use
  Company Number: None

PATIENT
  Age: 19 Year
  Sex: Female

DRUGS (2)
  1. MIFEPREX [Suspect]
  2. MISOPROSTOL [Suspect]

REACTIONS (5)
  - MIGRAINE [None]
  - PNEUMONIA [None]
  - PYREXIA [None]
  - UTERINE DILATION AND CURETTAGE [None]
  - VOMITING [None]
